FAERS Safety Report 12610099 (Version 1)
Quarter: 2016Q3

REPORT INFORMATION
  Report Type: Spontaneous
  Country: IT (occurrence: IT)
  Receive Date: 20160801
  Receipt Date: 20160801
  Transmission Date: 20161109
  Serious: Yes (Other)
  Sender: FDA-Public Use
  Company Number: PHHY2016IT101979

PATIENT
  Age: 23 Year
  Sex: Female

DRUGS (3)
  1. AMN107 [Suspect]
     Active Substance: NILOTINIB
     Dosage: 600 MG, QD
     Route: 065
  2. AMN107 [Suspect]
     Active Substance: NILOTINIB
     Indication: CHRONIC MYELOID LEUKAEMIA
     Dosage: 400 MG, QD
     Route: 065
  3. AMN107 [Suspect]
     Active Substance: NILOTINIB
     Dosage: 600 MG, QD
     Route: 065

REACTIONS (5)
  - Macule [Recovered/Resolved]
  - Drug eruption [Recovered/Resolved]
  - Papule [Recovered/Resolved]
  - Disease recurrence [Recovering/Resolving]
  - Rash pruritic [Recovered/Resolved]
